FAERS Safety Report 13180905 (Version 1)
Quarter: 2017Q1

REPORT INFORMATION
  Report Type: Spontaneous
  Country: US (occurrence: US)
  Receive Date: 20170202
  Receipt Date: 20170202
  Transmission Date: 20170428
  Serious: No
  Sender: FDA-Public Use
  Company Number: US-SMITH AND NEPHEW, INC-2016SMT00292

PATIENT
  Sex: Female
  Weight: 98.87 kg

DRUGS (6)
  1. BENAZEPRIL [Concomitant]
     Active Substance: BENAZEPRIL HYDROCHLORIDE
     Dosage: 40 MG, 1X/DAY
  2. REGRANEX [Suspect]
     Active Substance: BECAPLERMIN
     Indication: WOUND
     Dosage: UNK UNK, 1X/DAY
     Route: 061
     Dates: start: 201602, end: 20160321
  3. GLYBURIDE. [Concomitant]
     Active Substance: GLYBURIDE
     Dosage: 2.5 MG, 2X/DAY
  4. AMLODIPINE [Concomitant]
     Active Substance: AMLODIPINE BESYLATE
     Dosage: 2.5 MG, 1X/DAY
  5. AMLODIPINE [Concomitant]
     Active Substance: AMLODIPINE BESYLATE
     Dosage: 5 MG, 1X/DAY
  6. GABAPENTIN. [Concomitant]
     Active Substance: GABAPENTIN
     Dosage: 300 MG, 1X/DAY

REACTIONS (4)
  - Application site discharge [Unknown]
  - Application site vesicles [Not Recovered/Not Resolved]
  - Incorrect drug administration duration [Recovered/Resolved]
  - Application site pain [Recovered/Resolved]

NARRATIVE: CASE EVENT DATE: 2016
